FAERS Safety Report 9619530 (Version 1)
Quarter: 2013Q4

REPORT INFORMATION
  Report Type: Spontaneous
  Country: US (occurrence: US)
  Receive Date: 20131014
  Receipt Date: 20131014
  Transmission Date: 20140711
  Serious: Yes (Life-Threatening, Hospitalization, Other)
  Sender: FDA-Public Use
  Company Number: US-PFIZER INC-2013289620

PATIENT
  Age: 41 Year
  Sex: Female
  Weight: 113 kg

DRUGS (18)
  1. PRISTIQ [Suspect]
     Indication: POST-TRAUMATIC STRESS DISORDER
     Dosage: 50 MG, DAILY
     Dates: start: 2004
  2. TRAZODONE [Suspect]
     Indication: INSOMNIA
     Dosage: 100 MG, AS NEEDED
     Dates: start: 2002
  3. FLONASE [Suspect]
     Indication: SINUSITIS
     Dosage: 1 PUFF AS NEEDED
     Route: 045
     Dates: start: 2003
  4. FLONASE [Suspect]
     Indication: SINUS CONGESTION
     Dosage: 2 PUFFS, 2X/DAY (1 SPRAY IN EACH NOSTRIL TWICE DAILY)
  5. FLONASE [Suspect]
     Dosage: 1 SPRAY IN EACH NOSTRIL, 1X/DAY
     Dates: end: 20121215
  6. FLOVENT [Suspect]
     Indication: ASTHMA
     Dosage: 220 UG, 2X/DAY (2 PUFF)
  7. FLOVENT [Suspect]
     Dosage: 110 UG, 2X/DAY (2 PUFF)
  8. SINGULAIR [Suspect]
     Indication: ASTHMA
     Dosage: 10 MG, DAILY
     Dates: start: 2004
  9. SINGULAIR [Suspect]
     Indication: SINUS CONGESTION
  10. BIAXIN [Suspect]
     Indication: BRONCHITIS
     Dosage: UNK
     Dates: start: 20121201, end: 20121205
  11. KEPPRA [Suspect]
     Indication: EPILEPSY
     Dosage: 1500 MG, 2X/DAY
     Dates: start: 2000
  12. ALBUTEROL SULFATE [Suspect]
     Indication: ASTHMA
     Dosage: 1-2 PUFFS AS NEEDED
     Dates: start: 2003
  13. SUDAFED [Suspect]
     Indication: SINUS CONGESTION
     Dosage: UNK, AS NEEDED
     Dates: start: 2010
  14. TEMAZEPAM [Concomitant]
     Dosage: UNK
  15. FIORICET [Concomitant]
     Dosage: UNK
  16. VITAMIN D [Concomitant]
     Dosage: UNK
  17. AMOXICILLIN TRIHYDRATE [Concomitant]
     Dosage: UNK
  18. PREDNISONE [Concomitant]
     Dosage: UNK

REACTIONS (6)
  - Pre-eclampsia [Recovered/Resolved]
  - Pyrexia [Unknown]
  - Infection [Unknown]
  - Epistaxis [Recovering/Resolving]
  - Induced labour [Unknown]
  - Off label use [Unknown]
